FAERS Safety Report 5099158-3 (Version None)
Quarter: 2006Q3

REPORT INFORMATION
  Report Type: 
  Country: None (occurrence: None)
  Receive Date: 20060728
  Receipt Date: 20051230
  Transmission Date: 20061208
  Serious: No
  Sender: FDA-Public Use
  Company Number: COT_0285_2005

PATIENT
  Age: 72 Year
  Sex: Female
  Weight: 67.1324 kg

DRUGS (22)
  1. VENTAVIS [Suspect]
     Indication: PULMONARY HYPERTENSION
     Dosage: 2.5 MCG ONCE IH
     Route: 055
     Dates: start: 20050518, end: 20050518
  2. VENTAVIS [Suspect]
     Indication: PULMONARY HYPERTENSION
     Dosage: 5 MCG 6TO9X/DAY IH
     Route: 055
     Dates: start: 20050518
  3. VENTAVIS [Suspect]
     Indication: PULMONARY HYPERTENSION
     Dosage: 5 MCG 6TO9X/DAY IH
     Route: 055
     Dates: start: 20050518
  4. VENTAVIS [Suspect]
     Indication: PULMONARY HYPERTENSION
     Dosage: 5 MCG 6TO9X/DAY IH
     Route: 055
     Dates: start: 20050518
  5. VENTAVIS [Suspect]
     Indication: PULMONARY HYPERTENSION
     Dosage: 5 MCG 6TO9X/DAY IH
     Route: 055
     Dates: start: 20050518
  6. VENTAVIS [Suspect]
     Indication: PULMONARY HYPERTENSION
     Dosage: 5 MCG 6TO9X/DAY IH
     Route: 055
     Dates: start: 20050518
  7. VENTAVIS [Suspect]
     Indication: PULMONARY HYPERTENSION
     Dosage: 5 MCG 8XD IH
     Route: 055
  8. VENTAVIS [Suspect]
     Indication: PULMONARY HYPERTENSION
     Dosage: 5 MCG 7XD IH
     Route: 055
  9. VENTAVIS [Suspect]
     Indication: PULMONARY HYPERTENSION
     Dosage: 5 MCG 4-8X/DAY IH
     Route: 055
  10. VENTAVIS [Suspect]
     Indication: PULMONARY HYPERTENSION
     Dosage: 5 MCG 4 TIMES A DAY IH
     Route: 055
  11. SILDENAFIL [Suspect]
     Indication: PULMONARY HYPERTENSION
     Dosage: 50 MG TID PO
     Route: 048
  12. TRACLEER [Suspect]
     Indication: PULMONARY HYPERTENSION
     Dosage: 125 MG BID PO
     Route: 048
  13. REMODULIN [Concomitant]
  14. TOPROL-XL [Concomitant]
  15. KLOR-CON [Concomitant]
  16. SYNTHROID [Concomitant]
  17. TORSEMIDE [Concomitant]
  18. ALLOPURINOL [Concomitant]
  19. WARFARIN SODIUM [Concomitant]
  20. AMBIEN [Concomitant]
  21. PREDNISONE TAB [Concomitant]
  22. CYTOXAN [Concomitant]

REACTIONS (10)
  - COUGH [None]
  - DIZZINESS [None]
  - FLUSHING [None]
  - HEADACHE [None]
  - HYPOTENSION [None]
  - LIP PAIN [None]
  - NAUSEA [None]
  - ORAL DISCOMFORT [None]
  - SYNCOPE [None]
  - VOMITING [None]
